FAERS Safety Report 8442041 (Version 4)
Quarter: 2012Q4

REPORT INFORMATION
  Report Type: 
  Country: US (occurrence: US)
  Receive Date: 20120305
  Receipt Date: 20120920
  Transmission Date: 20130627
  Serious: Yes (Other)
  Sender: FDA-Public Use
  Company Number: US-PFIZER INC-2012055541

PATIENT
  Age: 61 Year
  Sex: Male

DRUGS (7)
  1. LYRICA [Suspect]
     Dosage: 150 mg, 3x/day
     Route: 048
     Dates: start: 201006, end: 201205
  2. ASA [Concomitant]
     Dosage: UNK
  3. HYDROCHLOROTHIAZIDE [Concomitant]
     Dosage: UNK
  4. VERAPAMIL [Concomitant]
     Dosage: UNK
  5. LISINOPRIL [Concomitant]
     Dosage: UNK
  6. PLAVIX [Concomitant]
     Dosage: UNK
  7. CRESTOR [Concomitant]
     Dosage: UNK

REACTIONS (4)
  - Leg amputation [Unknown]
  - Neuropathy peripheral [Unknown]
  - Head discomfort [Unknown]
  - Confusional state [Recovered/Resolved]
